FAERS Safety Report 7331726-8 (Version None)
Quarter: 2011Q1

REPORT INFORMATION
  Report Type: 
  Country: None (occurrence: None)
  Receive Date: 20110304
  Receipt Date: 20110304
  Transmission Date: 20110831
  Serious: Yes (Hospitalization, Disabling)
  Sender: FDA-Public Use
  Company Number: PHHO2008TR04191

PATIENT
  Sex: Female
  Weight: 61 kg

DRUGS (5)
  1. LOMOTIL [Concomitant]
     Indication: DIARRHOEA
     Dosage: UNK
     Dates: start: 20080521
  2. PLACEBO [Suspect]
     Indication: CARCINOID TUMOUR
     Dosage: PLACEBO
     Route: 048
     Dates: start: 20071207, end: 20080401
  3. SANDOSTATIN LAR [Suspect]
     Indication: CARCINOID TUMOUR
     Dosage: DOUBLE BLIND
     Route: 048
     Dates: start: 20071121, end: 20080330
  4. PLACEBO [Suspect]
     Dosage: DOUBLE BLIND
     Route: 048
     Dates: start: 20080416
  5. HYZAAR [Concomitant]
     Indication: HYPERTENSION
     Dosage: UNK
     Dates: start: 19980101

REACTIONS (3)
  - SURGERY [None]
  - FEMUR FRACTURE [None]
  - ACCIDENT AT HOME [None]
